FAERS Safety Report 6267162-5 (Version None)
Quarter: 2009Q3

REPORT INFORMATION
  Report Type: 
  Country: None (occurrence: None)
  Receive Date: 20090714
  Receipt Date: 20090316
  Transmission Date: 20100115
  Serious: No
  Sender: FDA-Public Use
  Company Number: US-ABBOTT-09P-163-0563198-00

PATIENT
  Sex: Female
  Weight: 68.1 kg

DRUGS (5)
  1. K-TAB [Suspect]
     Indication: ELECTROLYTE SUBSTITUTION THERAPY
     Route: 048
     Dates: start: 20090201
  2. K-TAB [Suspect]
     Indication: DIARRHOEA
  3. CELEBREX [Concomitant]
     Indication: ARTHRITIS
  4. CALCIUM WITH VITAMIN D [Concomitant]
     Indication: DRUG USE FOR UNKNOWN INDICATION
  5. PROBIOTICS [Concomitant]
     Indication: DIARRHOEA

REACTIONS (1)
  - MEDICATION RESIDUE [None]
